FAERS Safety Report 9597019 (Version 1)
Quarter: 2013Q4

REPORT INFORMATION
  Report Type: Report from Study
  Country: ES (occurrence: ES)
  Receive Date: 20131004
  Receipt Date: 20131004
  Transmission Date: 20140711
  Serious: Yes (Hospitalization, Disabling, Other)
  Sender: FDA-Public Use
  Company Number: ES-ABBVIE-13P-144-1152008-00

PATIENT
  Age: 42 Year
  Sex: Female
  Weight: 61.8 kg

DRUGS (5)
  1. HUMIRA [Suspect]
     Indication: PSORIASIS
     Dates: start: 20120923, end: 20130315
  2. SIMVASTATINE [Concomitant]
     Indication: BLOOD CHOLESTEROL ABNORMAL
     Route: 048
  3. OMEPRAZOL [Concomitant]
     Indication: GASTROOESOPHAGEAL REFLUX DISEASE
     Route: 048
  4. ALPRAZOLAM [Concomitant]
     Indication: ANXIOLYTIC THERAPY
  5. SINOVUL [Concomitant]
     Indication: CONTRACEPTION
     Dosage: 0.15 MG LEVONORGESTREL + 0.03 MG ETINILESTRADIOL

REACTIONS (6)
  - Mobility decreased [Unknown]
  - Malaise [Unknown]
  - Psoriatic arthropathy [Unknown]
  - Pain [Unknown]
  - Pyrexia [Unknown]
  - Oedema peripheral [Unknown]
